FAERS Safety Report 8543098-1 (Version None)
Quarter: 2012Q3

REPORT INFORMATION
  Report Type: 
  Country: None (occurrence: None)
  Receive Date: 20120727
  Receipt Date: 20111028
  Transmission Date: 20120928
  Serious: No
  Sender: FDA-Public Use
  Company Number: US-MYLANLABS-2011S1019692

PATIENT
  Age: 63 Year
  Sex: Male

DRUGS (10)
  1. SYMBICORT [Concomitant]
  2. FINASTERIDE [Concomitant]
  3. NIACIN [Concomitant]
  4. ALBUTEROL [Concomitant]
  5. LEVOTHYROXINE SODIUM [Suspect]
     Indication: HYPOTHYROIDISM
     Route: 048
     Dates: start: 20110715, end: 20110901
  6. HYDROCHLOROTHIAZIDE [Concomitant]
  7. METFORMIN HYDROCHLORIDE [Concomitant]
  8. SIMVASTATIN [Concomitant]
  9. CLARITIN /00413701/ [Concomitant]
  10. VITAMIN D [Concomitant]

REACTIONS (3)
  - INSOMNIA [None]
  - DRUG INEFFECTIVE [None]
  - MEDICATION RESIDUE [None]
